FAERS Safety Report 5305368-X (Version None)
Quarter: 2007Q2

REPORT INFORMATION
  Report Type: 
  Country: None (occurrence: None)
  Receive Date: 20070416
  Receipt Date: 20070410
  Transmission Date: 20071010
  Serious: Yes (Other)
  Sender: FDA-Public Use
  Company Number: 2007SP006484

PATIENT
  Sex: Male

DRUGS (1)
  1. CELESTAMINE TAB [Suspect]
     Indication: HOUSE DUST ALLERGY

REACTIONS (2)
  - BRIEF PSYCHOTIC DISORDER WITH MARKED STRESSORS [None]
  - MALAISE [None]
